FAERS Safety Report 6370861-8 (Version None)
Quarter: 2009Q3

REPORT INFORMATION
  Report Type: 
  Country: None (occurrence: None)
  Receive Date: 20090923
  Receipt Date: 20070601
  Transmission Date: 20100115
  Serious: No
  Sender: FDA-Public Use
  Company Number: US-ASTRAZENECA-2006UW24242

PATIENT
  Age: 14310 Day
  Sex: Female
  Weight: 97.5 kg

DRUGS (17)
  1. SEROQUEL [Suspect]
     Route: 048
     Dates: start: 20030925
  2. COREG [Concomitant]
  3. AVANDARYL [Concomitant]
  4. CYCLOBENZAPRINE HCL [Concomitant]
  5. LEVAQUIN [Concomitant]
  6. FLUCONAZOLE [Concomitant]
  7. PHENAZOPYRIDINE HCL TAB [Concomitant]
  8. RANITIDINE [Concomitant]
  9. GLYBURIDE [Concomitant]
  10. HYDROCHLOROTHIAZIDE [Concomitant]
  11. PALGIC [Concomitant]
  12. PAXIL [Concomitant]
  13. BUTALBITAL [Concomitant]
  14. PROZAC [Concomitant]
  15. LIPITOR [Concomitant]
  16. ACETAMINOPHEN [Concomitant]
  17. CAFFEINE CITRATE [Concomitant]

REACTIONS (15)
  - ABDOMINAL PAIN [None]
  - CHEST PAIN [None]
  - GASTROOESOPHAGEAL REFLUX DISEASE [None]
  - HYPERTENSION [None]
  - NECK PAIN [None]
  - OROPHARYNGEAL PAIN [None]
  - PHARYNGITIS [None]
  - RHINITIS ALLERGIC [None]
  - ROAD TRAFFIC ACCIDENT [None]
  - TENDERNESS [None]
  - TENSION HEADACHE [None]
  - TYPE 2 DIABETES MELLITUS [None]
  - URINARY TRACT INFECTION [None]
  - VAGINITIS BACTERIAL [None]
  - VULVOVAGINAL CANDIDIASIS [None]
